FAERS Safety Report 11766023 (Version 1)
Quarter: 2015Q4

REPORT INFORMATION
  Report Type: Spontaneous
  Country: GB (occurrence: GB)
  Receive Date: 20151122
  Receipt Date: 20151122
  Transmission Date: 20160304
  Serious: Yes (Other)
  Sender: FDA-Public Use
  Company Number: GB-TEVA-609172ACC

PATIENT
  Age: 72 Year
  Sex: Female
  Weight: 55 kg

DRUGS (10)
  1. CARBAMAZEPINE. [Concomitant]
     Active Substance: CARBAMAZEPINE
     Dosage: 20 ML DAILY; THROUGH PERCUTANEOUS ENDOSCOPIC GASTROSTOMY
     Route: 050
     Dates: start: 20150618
  2. CLARITHROMYCIN. [Concomitant]
     Active Substance: CLARITHROMYCIN
     Dosage: 1000 MILLIGRAM DAILY;
     Dates: start: 20151030
  3. LACTULOSE. [Concomitant]
     Active Substance: LACTULOSE
     Dosage: 20 ML DAILY;
     Dates: start: 20150622
  4. LANSOPRAZOLE. [Concomitant]
     Active Substance: LANSOPRAZOLE
     Dosage: 1 DOSAGE FORMS DAILY;
     Dates: start: 20151008
  5. AMOXICILLIN. [Suspect]
     Active Substance: AMOXICILLIN
     Dates: start: 20151030
  6. NUTRITIONAL SUPPLEMENT [Concomitant]
     Active Substance: DIETARY SUPPLEMENT
     Dosage: FRESUBIN 2KCAL, FRESUBIN ENERGY AND RESOURCE THICKENUP
     Dates: start: 20150402
  7. ADCAL [Concomitant]
     Dosage: 2 DOSAGE FORMS DAILY; LEMON
     Dates: start: 20130315
  8. CHLORPHENAMINE [Concomitant]
     Active Substance: CHLORPHENIRAMINE MALEATE
     Dosage: THREE TIMES A DAY, AS NECESSARY.
     Dates: start: 20150622
  9. AMLODIPINE [Concomitant]
     Active Substance: AMLODIPINE BESYLATE
     Dosage: 1 DOSAGE FORMS DAILY;
     Dates: start: 20140402
  10. SENNA [Concomitant]
     Active Substance: SENNA LEAF\SENNOSIDES\SENNOSIDES A AND B
     Dosage: 10 ML DAILY; AT NIGHT
     Dates: start: 20150910, end: 20151030

REACTIONS (1)
  - Circulatory collapse [Recovered/Resolved]

NARRATIVE: CASE EVENT DATE: 20151030
